FAERS Safety Report 8714861 (Version 3)
Quarter: 2012Q4

REPORT INFORMATION
  Report Type: Report from Study
  Country: US (occurrence: US)
  Receive Date: 20120809
  Receipt Date: 20120918
  Transmission Date: 20130627
  Serious: Yes (Death, Hospitalization)
  Sender: FDA-Public Use
  Company Number: US-ASTELLAS-2012US005161

PATIENT
  Age: 67 None
  Sex: Female

DRUGS (1)
  1. ERLOTINIB TABLET [Suspect]
     Indication: PRODUCT USED FOR UNKNOWN INDICATION
     Dosage: 150 mg, UID/QD
     Route: 048
     Dates: start: 20120521, end: 20120730

REACTIONS (5)
  - Hospice care [Unknown]
  - Diarrhoea [Unknown]
  - Rash [Unknown]
  - Dyspnoea [Unknown]
  - Malignant neoplasm progression [Fatal]
